FAERS Safety Report 6699268-0 (Version None)
Quarter: 2010Q2

REPORT INFORMATION
  Report Type: 
  Country: None (occurrence: None)
  Receive Date: 20100427
  Receipt Date: 20100416
  Transmission Date: 20101027
  Serious: Yes (Life-Threatening)
  Sender: FDA-Public Use
  Company Number: GB-TEVA-231914ISR

PATIENT
  Sex: Male

DRUGS (1)
  1. PRAVASTATIN [Suspect]
     Route: 048
     Dates: start: 20100202, end: 20100326

REACTIONS (4)
  - DEPRESSION [None]
  - FATIGUE [None]
  - SLEEP DISORDER [None]
  - SUICIDAL IDEATION [None]
